FAERS Safety Report 4826156-4 (Version None)
Quarter: 2005Q4

REPORT INFORMATION
  Report Type: 
  Country: None (occurrence: None)
  Receive Date: 20051109
  Receipt Date: 20051026
  Transmission Date: 20060501
  Serious: Yes (Other)
  Sender: FDA-Public Use
  Company Number: 002#1#2005-00346

PATIENT
  Age: 60 Year
  Sex: Male

DRUGS (1)
  1. EDEX [Suspect]
     Dosage: INTRACAVERNOUS
     Route: 017

REACTIONS (2)
  - DEVICE FAILURE [None]
  - FOREIGN BODY TRAUMA [None]
